FAERS Safety Report 8486675-9 (Version None)
Quarter: 2012Q3

REPORT INFORMATION
  Report Type: 
  Country: None (occurrence: None)
  Receive Date: 20120703
  Receipt Date: 20120628
  Transmission Date: 20120928
  Serious: Yes (Other)
  Sender: FDA-Public Use
  Company Number: US-AMGEN-USASP2011067230

PATIENT
  Age: 61 Year
  Sex: Female

DRUGS (1)
  1. NPLATE [Suspect]
     Indication: IDIOPATHIC THROMBOCYTOPENIC PURPURA
     Dates: start: 20110601

REACTIONS (4)
  - DRUG INEFFECTIVE [None]
  - HAEMORRHAGE [None]
  - PLATELET MORPHOLOGY ABNORMAL [None]
  - PLATELET COUNT ABNORMAL [None]
